FAERS Safety Report 6884176-2 (Version None)
Quarter: 2010Q3

REPORT INFORMATION
  Report Type: 
  Country: None (occurrence: None)
  Receive Date: 20100729
  Receipt Date: 20100719
  Transmission Date: 20110219
  Serious: Yes (Hospitalization)
  Sender: FDA-Public Use
  Company Number: US-WYE-H14163610

PATIENT
  Age: 74 Year
  Sex: Female

DRUGS (20)
  1. TEMSIROLIMUS [Suspect]
     Indication: RENAL CELL CARCINOMA
     Dosage: 25MG OVER 30MIN DAYS 1,8,15,AND 22 OF CYCLE
     Route: 042
     Dates: start: 20090918, end: 20100113
  2. EMLA [Concomitant]
  3. MULTI-VITAMINS [Concomitant]
  4. CITALOPRAM [Concomitant]
  5. LASIX [Concomitant]
  6. COZAAR [Concomitant]
  7. NORVASC [Concomitant]
  8. MARINOL [Concomitant]
  9. REGLAN [Concomitant]
  10. ALBUTEROL [Concomitant]
  11. ATROVENT [Concomitant]
  12. ARIXTRA [Concomitant]
  13. PREDNISONE [Concomitant]
  14. PROCRIT [Concomitant]
  15. LACTULOSE [Concomitant]
  16. PROMETHAZINE [Concomitant]
  17. XOPENEX [Concomitant]
  18. HYDROCORTISONE ACETATE [Concomitant]
  19. NEBIVOLOL [Concomitant]
  20. BEVACIZUMAB [Suspect]
     Indication: RENAL CELL CARCINOMA
     Dosage: 10MG/KG OVER 30-90 MIN DAYS 1 AND 15
     Route: 042
     Dates: start: 20090918, end: 20091201

REACTIONS (3)
  - DIARRHOEA [None]
  - PERINEAL FISTULA [None]
  - PROCTALGIA [None]
